FAERS Safety Report 7483798-8 (Version None)
Quarter: 2011Q2

REPORT INFORMATION
  Report Type: 
  Country: None (occurrence: None)
  Receive Date: 20110517
  Receipt Date: 20110511
  Transmission Date: 20111010
  Serious: Yes (Death)
  Sender: FDA-Public Use
  Company Number: PHHY2011DE39824

PATIENT
  Sex: Female

DRUGS (25)
  1. ZOMETA [Suspect]
     Dosage: 4 MG, UNK
     Route: 042
     Dates: start: 20100527
  2. FUROSEMID [Concomitant]
     Dosage: 40 MG, UNK
     Dates: start: 20050101
  3. OXYCODONE HCL [Concomitant]
     Dosage: 160 MG, UNK
     Dates: start: 20080301
  4. ZOMETA [Suspect]
     Dosage: 4MG
     Route: 042
     Dates: start: 20090924
  5. IBUPROFEN [Concomitant]
     Dosage: 1200 MG, UNK
     Dates: start: 20080301
  6. ZOMETA [Suspect]
     Dosage: 4 MG, UNK
     Route: 042
     Dates: start: 20100318
  7. ZOMETA [Suspect]
     Dosage: 4 MG, UNK
     Route: 042
     Dates: start: 20090730
  8. ZOMETA [Suspect]
     Dosage: 4 MG, UNK
     Route: 042
     Dates: start: 20090827
  9. ZOMETA [Suspect]
     Dosage: 4 MG, UNK
     Route: 042
     Dates: start: 20100722
  10. RAMIPRIL [Concomitant]
     Dosage: 10 MG, UNK
     Dates: start: 20050101
  11. ZOMETA [Suspect]
     Dosage: 4 MG, UNK
     Route: 042
     Dates: start: 20090702
  12. ZOMETA [Suspect]
     Dosage: 4 MG, UNK
     Route: 042
     Dates: start: 20091119
  13. ZOMETA [Suspect]
     Dosage: 4 MG, UNK
     Route: 042
     Dates: start: 20100422
  14. ZOMETA [Suspect]
     Dosage: 4 MG, UNK
     Route: 042
     Dates: start: 20100624
  15. KATADOLON [Concomitant]
     Dosage: 42 MG, UNK
     Dates: start: 20050101
  16. ZOMETA [Suspect]
     Indication: BONE DISORDER
     Dosage: 4 MG, UNK
     Route: 042
     Dates: start: 20090604
  17. ZOMETA [Suspect]
     Dosage: 4 MG, UNK
     Route: 042
     Dates: start: 20091218
  18. ZOMETA [Suspect]
     Dosage: 4 MG, UNK
     Route: 042
     Dates: start: 20100114
  19. ZOMETA [Suspect]
     Dosage: 4 MG, UNK
     Route: 042
     Dates: start: 20100211
  20. ZOMETA [Suspect]
     Dosage: 4 MG, UNK
     Route: 042
     Dates: start: 20100819
  21. KATADOLON [Concomitant]
     Dosage: UNK
  22. OMEPRAZOL [Concomitant]
     Dosage: UNK
  23. ZOMETA [Suspect]
     Dosage: 4 MG, UNK
     Route: 042
     Dates: start: 20091022
  24. ZOMETA [Suspect]
     Dosage: 4 MG, UNK
     Route: 042
     Dates: start: 20100916
  25. TRANSTEC [Concomitant]

REACTIONS (3)
  - DEATH [None]
  - BONE PAIN [None]
  - WEIGHT DECREASED [None]
